FAERS Safety Report 7533979-X (Version None)
Quarter: 2011Q2

REPORT INFORMATION
  Report Type: 
  Country: None (occurrence: None)
  Receive Date: 20110608
  Receipt Date: 20060720
  Transmission Date: 20111010
  Serious: Yes (Other)
  Sender: FDA-Public Use
  Company Number: PHFR2006GB02136

PATIENT
  Sex: Female

DRUGS (2)
  1. CLOZAPINE [Suspect]
     Indication: SCHIZOPHRENIA
     Dosage: 300 MG, PER DAY
     Route: 048
     Dates: start: 20060602
  2. CLOZAPINE [Suspect]
     Dosage: 275MG/DAY
     Route: 048
     Dates: end: 20060619

REACTIONS (4)
  - ASTHENIA [None]
  - SPEECH DISORDER [None]
  - TONGUE PARALYSIS [None]
  - FATIGUE [None]
